FAERS Safety Report 6580785-9 (Version None)
Quarter: 2010Q1

REPORT INFORMATION
  Report Type: 
  Country: None (occurrence: None)
  Receive Date: 20100213
  Receipt Date: 20100201
  Transmission Date: 20100710
  Serious: Yes (Other)
  Sender: FDA-Public Use
  Company Number: US-ELI_LILLY_AND_COMPANY-US200908003521

PATIENT
  Sex: Female
  Weight: 63.946 kg

DRUGS (18)
  1. FORTEO [Suspect]
     Indication: OSTEOPOROSIS
     Dosage: UNK, UNK
     Dates: start: 20090803
  2. FORTEO [Suspect]
     Dosage: UNK, UNKNOWN
  3. HYDROCORTISONE [Concomitant]
     Dosage: 20 MG, EACH MORNING
  4. REMERON [Concomitant]
     Dosage: 15 MG, EACH EVENING
  5. PHENERGAN HCL [Concomitant]
     Dosage: 15 MG, AS NEEDED
  6. FOSAMAX [Concomitant]
  7. DILTIAZEM HCL [Concomitant]
     Dosage: 120 MG, 2/D
  8. MUCINEX [Concomitant]
     Dosage: 600 MG, AS NEEDED
  9. CAPTOPRIL [Concomitant]
     Dosage: 12.5 MG, 2/D
  10. MAGNESIUM [Concomitant]
  11. MULTIVITAMIN [Concomitant]
     Dosage: UNK, 2/D
  12. COUMADIN [Concomitant]
  13. LORAZEPAM [Concomitant]
     Dosage: 0.5 MG, AS NEEDED
  14. VITAMIN B-12 [Concomitant]
     Dosage: UNK, MONTHLY (1/M)
     Route: 030
  15. ALBUTEROL [Concomitant]
     Dosage: UNK, AS NEEDED
  16. SYMBICORT [Concomitant]
  17. TYLENOL                                 /SCH/ [Concomitant]
     Dosage: UNK, AS NEEDED
  18. CALCIUM 600 + D [Concomitant]

REACTIONS (7)
  - INTENTIONAL DRUG MISUSE [None]
  - KIDNEY INFECTION [None]
  - MALAISE [None]
  - MEDICATION ERROR [None]
  - NAUSEA [None]
  - PYREXIA [None]
  - URINARY TRACT INFECTION [None]
